FAERS Safety Report 9466832 (Version 2)
Quarter: 2013Q3

REPORT INFORMATION
  Report Type: Spontaneous
  Country: GB (occurrence: GB)
  Receive Date: 20130820
  Receipt Date: 20130923
  Transmission Date: 20140515
  Serious: Yes (Life-Threatening, Other)
  Sender: FDA-Public Use
  Company Number: GB-PFIZER INC-2013236322

PATIENT
  Age: 47 Year
  Sex: Female

DRUGS (1)
  1. DEPO-MEDRONE WITH LIDOCAINE [Suspect]
     Dosage: 40 MG, UNK

REACTIONS (1)
  - Loss of consciousness [Recovered/Resolved]
